FAERS Safety Report 9640896 (Version 1)
Quarter: 2013Q4

REPORT INFORMATION
  Report Type: Report from Study
  Country: US (occurrence: US)
  Receive Date: 20131023
  Receipt Date: 20131023
  Transmission Date: 20140711
  Serious: No
  Sender: FDA-Public Use
  Company Number: US-ABBVIE-13P-163-1143817-00

PATIENT
  Sex: Female

DRUGS (3)
  1. LUPRON DEPOT [Suspect]
     Indication: DYSMENORRHOEA
     Dates: start: 2013, end: 2013
  2. LUPRON DEPOT [Suspect]
     Indication: PELVIC PAIN
  3. PAXIL [Concomitant]
     Indication: PRODUCT USED FOR UNKNOWN INDICATION

REACTIONS (1)
  - Muscle spasms [Unknown]
